FAERS Safety Report 10007088 (Version 2)
Quarter: 2014Q1

REPORT INFORMATION
  Report Type: Spontaneous
  Country: US (occurrence: US)
  Receive Date: 20140313
  Receipt Date: 20140313
  Transmission Date: 20141002
  Serious: No
  Sender: FDA-Public Use
  Company Number: US-GILEAD-2013-0067437

PATIENT
  Age: 33 Year
  Sex: Male

DRUGS (1)
  1. LETAIRIS [Suspect]
     Indication: EMBOLISM
     Dosage: 5 MG, UNK
     Route: 048
     Dates: start: 20121206

REACTIONS (3)
  - Feeling abnormal [Unknown]
  - Pruritus [Unknown]
  - Dizziness [Unknown]
